FAERS Safety Report 7405312-5 (Version None)
Quarter: 2011Q2

REPORT INFORMATION
  Report Type: 
  Country: None (occurrence: None)
  Receive Date: 20110411
  Receipt Date: 20110329
  Transmission Date: 20111010
  Serious: Yes (Other)
  Sender: FDA-Public Use
  Company Number: PHHY2011ES25840

PATIENT
  Age: 82 Year
  Sex: Female

DRUGS (2)
  1. EXELON [Suspect]
     Indication: SENILE DEMENTIA
     Dosage: 4.6 MG, UNK
     Route: 062
  2. EXELON [Suspect]
     Dosage: 9.5 MG PER DAY
     Route: 062

REACTIONS (1)
  - TOXIC SKIN ERUPTION [None]
